FAERS Safety Report 5476330-1 (Version None)
Quarter: 2007Q4

REPORT INFORMATION
  Report Type: 
  Country: None (occurrence: None)
  Receive Date: 20071003
  Receipt Date: 20070925
  Transmission Date: 20080405
  Serious: Yes (Hospitalization, Other)
  Sender: FDA-Public Use
  Company Number: US-PFIZER INC-2007033766

PATIENT
  Sex: Male

DRUGS (2)
  1. BEXTRA [Suspect]
     Indication: ARTHRITIS
  2. VIOXX [Suspect]
     Route: 048

REACTIONS (3)
  - CARDIOVASCULAR DISORDER [None]
  - ISCHAEMIC STROKE [None]
  - MYOCARDIAL INFARCTION [None]
